FAERS Safety Report 4472061-5 (Version None)
Quarter: 2004Q4

REPORT INFORMATION
  Report Type: 
  Country: None (occurrence: None)
  Receive Date: 20041012
  Receipt Date: 20040928
  Transmission Date: 20050328
  Serious: Yes (Other)
  Sender: FDA-Public Use
  Company Number: 2004071132

PATIENT
  Age: 76 Year
  Sex: Female
  Weight: 90.7194 kg

DRUGS (1)
  1. ROLAIDS [Suspect]
     Indication: FLATULENCE
     Dosage: ONE TABLET INTERMITTENTLY- AS NEEDED, ORAL
     Route: 048
     Dates: start: 19890101

REACTIONS (1)
  - CARDIAC OPERATION [None]
